FAERS Safety Report 14410401 (Version 2)
Quarter: 2018Q1

REPORT INFORMATION
  Report Type: Spontaneous
  Country: JP (occurrence: JP)
  Receive Date: 20180119
  Receipt Date: 20180215
  Transmission Date: 20180509
  Serious: Yes (Other)
  Sender: FDA-Public Use
  Company Number: JP-AMGEN-JPNSP2018007077

PATIENT
  Age: 51 Year
  Sex: Female

DRUGS (4)
  1. GRAN [Suspect]
     Active Substance: FILGRASTIM
     Indication: PRODUCT USED FOR UNKNOWN INDICATION
     Dosage: UNK
     Route: 065
  2. CISPLATIN. [Concomitant]
     Active Substance: CISPLATIN
     Indication: GERM CELL CANCER
     Dosage: UNK
     Route: 041
  3. ETOPOSIDE. [Concomitant]
     Active Substance: ETOPOSIDE
     Indication: GERM CELL CANCER
     Dosage: UNK
     Route: 041
  4. BLEOMYCIN HYDROCHLORIDE [Concomitant]
     Active Substance: BLEOMYCIN HYDROCHLORIDE
     Indication: GERM CELL CANCER
     Dosage: UNK
     Route: 041

REACTIONS (1)
  - Febrile neutropenia [Unknown]
